FAERS Safety Report 12899378 (Version 1)
Quarter: 2016Q4

REPORT INFORMATION
  Report Type: Spontaneous
  Country: US (occurrence: US)
  Receive Date: 20161101
  Receipt Date: 20161101
  Transmission Date: 20170207
  Serious: No
  Sender: FDA-Public Use
  Company Number: US-ABBVIE-15P-163-1524437-00

PATIENT

DRUGS (1)
  1. BIAXIN [Suspect]
     Active Substance: CLARITHROMYCIN
     Indication: PRODUCT USED FOR UNKNOWN INDICATION
     Route: 048

REACTIONS (7)
  - Abdominal pain upper [Unknown]
  - Feeling abnormal [Unknown]
  - Insomnia [Unknown]
  - Dysgeusia [Unknown]
  - Tachyphrenia [Unknown]
  - Muscle tightness [Unknown]
  - Constipation [Unknown]
